FAERS Safety Report 8846105 (Version 1)
Quarter: 2012Q4

REPORT INFORMATION
  Report Type: 
  Country: JP (occurrence: JP)
  Receive Date: 20121017
  Receipt Date: 20121017
  Transmission Date: 20130627
  Serious: Yes (Hospitalization, Other)
  Sender: FDA-Public Use
  Company Number: JP-009507513-1204USA01146

PATIENT
  Age: 60 Year
  Sex: Female
  Weight: 80 kg

DRUGS (6)
  1. JANUVIA TABLETS 50MG [Suspect]
     Indication: TYPE 2 DIABETES MELLITUS
     Dosage: 50 mg, qd
     Route: 048
     Dates: start: 201110, end: 2011
  2. JANUVIA TABLETS 50MG [Suspect]
     Dosage: 50 UNK, UNK
     Route: 048
     Dates: start: 2012, end: 20120216
  3. METGLUCO [Concomitant]
     Indication: DIABETES MELLITUS
     Dosage: dosage is uncertain during a day
     Route: 048
     Dates: start: 201106
  4. GLUCOBAY [Concomitant]
     Dosage: dosage is uncertain during a day
     Route: 048
     Dates: start: 201106
  5. BASEN [Concomitant]
     Indication: DIABETES MELLITUS
     Dosage: 1 DF, tid
     Route: 048
     Dates: start: 201106
  6. METHYCOBAL [Concomitant]
     Indication: DIABETES MELLITUS
     Dosage: 1 DF, tid
     Route: 048
     Dates: start: 201106

REACTIONS (3)
  - Back pain [Recovered/Resolved]
  - Renal failure acute [Recovering/Resolving]
  - Drug eruption [Unknown]
